FAERS Safety Report 23503871 (Version 1)
Quarter: 2024Q1

REPORT INFORMATION
  Report Type: Spontaneous
  Country: US (occurrence: US)
  Receive Date: 20240209
  Receipt Date: 20240209
  Transmission Date: 20240410
  Serious: No
  Sender: FDA-Public Use
  Company Number: US-HORIZON THERAPEUTICS-HZN-2023-007559

PATIENT

DRUGS (2)
  1. TEPEZZA [Suspect]
     Active Substance: TEPROTUMUMAB-TRBW
     Indication: Product used for unknown indication
     Dosage: FIRST DOSE
     Route: 065
  2. TEPEZZA [Suspect]
     Active Substance: TEPROTUMUMAB-TRBW
     Dosage: FINISHED TEPEZZA IN NOVEMBER
     Route: 065

REACTIONS (6)
  - Therapeutic response unexpected [Unknown]
  - Eustachian tube dysfunction [Unknown]
  - Muscle spasms [Unknown]
  - Hyperacusis [Unknown]
  - Acne [Unknown]
  - Sinus congestion [Unknown]

NARRATIVE: CASE EVENT DATE: 20230901
